FAERS Safety Report 11675944 (Version 2)
Quarter: 2015Q4

REPORT INFORMATION
  Report Type: Spontaneous
  Country: CN (occurrence: CN)
  Receive Date: 20151028
  Receipt Date: 20151030
  Transmission Date: 20160304
  Serious: Yes (Other)
  Sender: FDA-Public Use
  Company Number: CN-JNJFOC-20151017161

PATIENT
  Age: 1 Year
  Sex: Male
  Weight: 13.5 kg

DRUGS (3)
  1. TYLENOL [Suspect]
     Active Substance: ACETAMINOPHEN
     Indication: PYREXIA
     Route: 048
     Dates: start: 201504, end: 20150405
  2. CEFTAZIDIME. [Suspect]
     Active Substance: CEFTAZIDIME
     Indication: UPPER RESPIRATORY TRACT INFECTION
     Route: 042
     Dates: start: 20150404, end: 20150408
  3. MONTMORILLONITE [Suspect]
     Active Substance: MONTMORILLONITE
     Indication: PRODUCT USED FOR UNKNOWN INDICATION
     Route: 048
     Dates: start: 201504, end: 201504

REACTIONS (1)
  - Granulocytopenia [Recovered/Resolved]

NARRATIVE: CASE EVENT DATE: 20150408
